FAERS Safety Report 6013554-9 (Version None)
Quarter: 2008Q4

REPORT INFORMATION
  Report Type: 
  Country: None (occurrence: None)
  Receive Date: 20081218
  Receipt Date: 20081218
  Transmission Date: 20090506
  Serious: Yes (Hospitalization)
  Sender: FDA-Public Use
  Company Number: None

PATIENT
  Sex: Female
  Weight: 61.2 kg

DRUGS (1)
  1. TEMOZOLOMIDE [Suspect]
     Dosage: 3360 MG

REACTIONS (6)
  - APHASIA [None]
  - CRANIAL NEUROPATHY [None]
  - DISEASE PROGRESSION [None]
  - MOTOR NEURONE DISEASE [None]
  - OEDEMA [None]
  - SPEECH DISORDER [None]
